FAERS Safety Report 7391811-1 (Version None)
Quarter: 2011Q2

REPORT INFORMATION
  Report Type: 
  Country: None (occurrence: None)
  Receive Date: 20110404
  Receipt Date: 20110325
  Transmission Date: 20111010
  Serious: Yes (Other)
  Sender: FDA-Public Use
  Company Number: US-AMGEN-USASP2011016269

PATIENT
  Age: 28 Year
  Sex: Male

DRUGS (1)
  1. ARANESP [Suspect]
     Indication: RENAL FAILURE CHRONIC
     Dates: end: 20110325

REACTIONS (5)
  - HAEMOGLOBIN DECREASED [None]
  - DRUG RESISTANCE [None]
  - TRANSFUSION [None]
  - ENTEROCOCCAL SEPSIS [None]
  - DEVICE RELATED SEPSIS [None]
